FAERS Safety Report 9360185 (Version 1)
Quarter: 2013Q2

REPORT INFORMATION
  Report Type: Spontaneous
  Country: US (occurrence: US)
  Receive Date: 20130621
  Receipt Date: 20130621
  Transmission Date: 20140414
  Serious: No
  Sender: FDA-Public Use
  Company Number: US-US-EMD SERONO, INC.-7158758

PATIENT
  Age: 52 Year
  Sex: Female
  Weight: 69 kg

DRUGS (3)
  1. REBIF [Suspect]
     Indication: MULTIPLE SCLEROSIS
     Route: 058
     Dates: start: 20120425, end: 201205
  2. REBIF [Suspect]
     Route: 058
     Dates: start: 201205
  3. UNSPECIFIED MEDICATION [Suspect]
     Indication: SENSATION OF PRESSURE

REACTIONS (2)
  - Insomnia [Recovering/Resolving]
  - Sensation of pressure [Not Recovered/Not Resolved]
